FAERS Safety Report 4282961-7 (Version None)
Quarter: 2004Q1

REPORT INFORMATION
  Report Type: 
  Country: None (occurrence: None)
  Receive Date: 20040130
  Receipt Date: 20040120
  Transmission Date: 20041129
  Serious: Yes (Hospitalization)
  Sender: FDA-Public Use
  Company Number: DE-BRISTOL-MYERS SQUIBB COMPANY-12480737

PATIENT
  Age: 65 Year
  Sex: Male

DRUGS (2)
  1. CISPLATIN [Suspect]
     Indication: SMALL CELL LUNG CANCER STAGE UNSPECIFIED
     Dosage: = 140 MG TOTAL DAILY DOSE
     Route: 042
     Dates: start: 20031111, end: 20031111
  2. TOPOTECAN [Suspect]
     Indication: SMALL CELL LUNG CANCER STAGE UNSPECIFIED
     Dosage: TOTAL DAILY DOSE = 2.30 MG
     Route: 042
     Dates: start: 20031205, end: 20031205

REACTIONS (4)
  - CHOLECYSTITIS [None]
  - GALLBLADDER PERFORATION [None]
  - HAEMOGLOBIN DECREASED [None]
  - PERITONITIS [None]
